FAERS Safety Report 15599718 (Version 2)
Quarter: 2018Q4

REPORT INFORMATION
  Report Type: Report from Study
  Country: CO (occurrence: CO)
  Receive Date: 20181108
  Receipt Date: 20181113
  Transmission Date: 20190205
  Serious: Yes (Death, Hospitalization)
  Sender: FDA-Public Use
  Company Number: CO-ACTELION-A-US2018-181584

PATIENT
  Age: 68 Year
  Sex: Female

DRUGS (10)
  1. METOPROLOL. [Concomitant]
     Active Substance: METOPROLOL
     Indication: ARRHYTHMIA
  2. AMIODARONE [Concomitant]
     Active Substance: AMIODARONE
     Indication: ARRHYTHMIA
  3. ADEMPAS [Suspect]
     Active Substance: RIOCIGUAT
     Dosage: 1.5 MG, UNK
     Route: 048
     Dates: start: 20180802
  4. OXYGEN. [Concomitant]
     Active Substance: OXYGEN
  5. ADEMPAS [Suspect]
     Active Substance: RIOCIGUAT
     Indication: PULMONARY HYPERTENSION
     Dosage: 1.5 MG, TID
     Route: 048
     Dates: start: 20180529, end: 20180712
  6. ENOXAPARIN [Concomitant]
     Active Substance: ENOXAPARIN
     Indication: VENOUS THROMBOSIS
  7. FUROSEMIDE. [Concomitant]
     Active Substance: FUROSEMIDE
     Indication: FLUID RETENTION
  8. ADEMPAS [Suspect]
     Active Substance: RIOCIGUAT
     Dosage: 1 MG, TID
     Route: 048
  9. CARVEDILOL. [Concomitant]
     Active Substance: CARVEDILOL
     Indication: HYPERTENSION
  10. VENTAVIS [Suspect]
     Active Substance: ILOPROST
     Indication: PULMONARY HYPERTENSION
     Dosage: 1 DF, Q4HRS
     Route: 055
     Dates: end: 201809

REACTIONS (2)
  - Deep vein thrombosis [Fatal]
  - Urinary tract infection [Unknown]

NARRATIVE: CASE EVENT DATE: 201809
